FAERS Safety Report 26189348 (Version 1)
Quarter: 2025Q4

REPORT INFORMATION
  Report Type: Spontaneous
  Country: JP (occurrence: JP)
  Receive Date: 20251223
  Receipt Date: 20251223
  Transmission Date: 20260119
  Serious: Yes (Other)
  Sender: ALEXION PHARMACEUTICALS
  Company Number: JP-AstraZeneca-CH-01018894A

PATIENT

DRUGS (1)
  1. DAPAGLIFLOZIN [Suspect]
     Active Substance: DAPAGLIFLOZIN
     Indication: Diabetes mellitus
     Dosage: UNK
     Route: 065

REACTIONS (11)
  - Pollakiuria [Unknown]
  - Gout [Unknown]
  - Hyperlipidaemia [Unknown]
  - Nephrolithiasis [Unknown]
  - Thirst [Unknown]
  - Diarrhoea [Unknown]
  - Dizziness postural [Unknown]
  - Urinary incontinence [Unknown]
  - Gamma-glutamyltransferase increased [Unknown]
  - Red blood cell count increased [Unknown]
  - Hepatic function abnormal [Unknown]
